FAERS Safety Report 18518516 (Version 1)
Quarter: 2020Q4

REPORT INFORMATION
  Report Type: Report from Study
  Country: AR (occurrence: AR)
  Receive Date: 20201118
  Receipt Date: 20201118
  Transmission Date: 20210114
  Serious: Yes (Other)
  Sender: FDA-Public Use
  Company Number: PHHY2014AR170384

PATIENT
  Age: 33 Year
  Sex: Female

DRUGS (5)
  1. CLONAZEPAM. [Concomitant]
     Active Substance: CLONAZEPAM
     Indication: PRODUCT USED FOR UNKNOWN INDICATION
     Dosage: UNK
     Route: 065
  2. GILENYA [Suspect]
     Active Substance: FINGOLIMOD HYDROCHLORIDE
     Dosage: UNK
     Route: 048
     Dates: start: 20150106, end: 2017
  3. GILENYA [Suspect]
     Active Substance: FINGOLIMOD HYDROCHLORIDE
     Indication: MULTIPLE SCLEROSIS
     Dosage: 1 DF, QD
     Route: 048
     Dates: start: 20130208
  4. GILENYA [Suspect]
     Active Substance: FINGOLIMOD HYDROCHLORIDE
     Dosage: 1 DF, QD
     Route: 048
     Dates: start: 20130227
  5. GILENYA [Suspect]
     Active Substance: FINGOLIMOD HYDROCHLORIDE
     Dosage: UNK
     Route: 048
     Dates: start: 20140227, end: 20150103

REACTIONS (22)
  - Mood altered [Recovering/Resolving]
  - Pain of skin [Recovered/Resolved]
  - Fear [Unknown]
  - Trismus [Recovering/Resolving]
  - Asthenia [Not Recovered/Not Resolved]
  - Myalgia [Recovering/Resolving]
  - Trismus [Recovered/Resolved]
  - Demyelination [Not Recovered/Not Resolved]
  - Muscle rigidity [Recovered/Resolved]
  - Pain [Not Recovered/Not Resolved]
  - Emotional distress [Recovered/Resolved]
  - Limb discomfort [Recovering/Resolving]
  - Speech disorder [Unknown]
  - Multiple sclerosis relapse [Recovering/Resolving]
  - Urinary tract infection [Recovering/Resolving]
  - Paraesthesia [Recovered/Resolved]
  - Tremor [Not Recovered/Not Resolved]
  - Panic attack [Recovered/Resolved]
  - Hypoaesthesia [Recovering/Resolving]
  - Sinusitis [Recovering/Resolving]
  - Fatigue [Not Recovered/Not Resolved]
  - Headache [Not Recovered/Not Resolved]

NARRATIVE: CASE EVENT DATE: 20130227
